FAERS Safety Report 9580436 (Version 2)
Quarter: 2013Q4

REPORT INFORMATION
  Report Type: Report from Study
  Country: US (occurrence: US)
  Receive Date: 20131002
  Receipt Date: 20131002
  Transmission Date: 20140711
  Serious: Yes (Other)
  Sender: FDA-Public Use
  Company Number: US-TEVA-427377USA

PATIENT
  Age: 59 Year
  Sex: Female

DRUGS (22)
  1. COPAXONE [Suspect]
     Indication: MULTIPLE SCLEROSIS
     Dates: start: 20111206, end: 20130620
  2. ASA [Concomitant]
  3. ATORVASTATIN [Concomitant]
  4. BACLOFEN [Concomitant]
  5. COZAAR [Concomitant]
  6. DIAZEPAM [Concomitant]
  7. TECFIDERA [Concomitant]
  8. DOXYCYCLINE [Concomitant]
  9. FISH OIL [Concomitant]
  10. FLAVOXATE [Concomitant]
  11. FLUTICASONE [Concomitant]
  12. FUROSEMIDE [Concomitant]
  13. GABAPENTIN [Concomitant]
  14. HUMALOG [Concomitant]
  15. LANTUS [Concomitant]
  16. MULTIVITAMIN [Concomitant]
  17. NADOLOL [Concomitant]
  18. POTASSIUM CHLORIDE [Concomitant]
  19. PROBIOTIC [Concomitant]
  20. RANITIDINE [Concomitant]
  21. RESTASIS [Concomitant]
  22. TRAMADOL [Concomitant]

REACTIONS (2)
  - Thyroid neoplasm [Not Recovered/Not Resolved]
  - Injection site reaction [Recovered/Resolved]
